FAERS Safety Report 4443535-8 (Version None)
Quarter: 2004Q3

REPORT INFORMATION
  Report Type: 
  Country: None (occurrence: None)
  Receive Date: 20040908
  Receipt Date: 20040806
  Transmission Date: 20050211
  Serious: Yes (Other)
  Sender: FDA-Public Use
  Company Number: PHNU2004DE02756

PATIENT
  Age: 69 Year
  Sex: Female

DRUGS (1)
  1. PROVAS COMP [Suspect]
     Indication: HYPERTENSION
     Dosage: 1 DF, QD
     Route: 048
     Dates: start: 20030915, end: 20040824

REACTIONS (3)
  - GASTRITIS [None]
  - HAEMOGLOBIN DECREASED [None]
  - IRON DEFICIENCY [None]
